FAERS Safety Report 23918752 (Version 1)
Quarter: 2024Q2

REPORT INFORMATION
  Report Type: Other
  Country: CN (occurrence: None)
  Receive Date: 20240530
  Receipt Date: 20240530
  Transmission Date: 20240716
  Serious: Yes (Other)
  Sender: FDA-Public Use
  Company Number: CN-ROCHE-3570164

PATIENT

DRUGS (7)
  1. CAPECITABINE [Suspect]
     Active Substance: CAPECITABINE
     Indication: Breast cancer metastatic
     Dosage: FROM DAY 1 TO DAY 14 OF EACH TREATMENT CYCLE, FOLLOWED BY 7 DAYS OFF
     Route: 048
  2. TRASTUZUMAB [Suspect]
     Active Substance: TRASTUZUMAB
     Indication: Breast cancer metastatic
     Dosage: OVER AT LEAST 90 MINUTES IN TREATMENT CYCLE 1
     Route: 042
  3. TRASTUZUMAB [Suspect]
     Active Substance: TRASTUZUMAB
     Dosage: OVER AT LEAST 30 MINUTES IN SUBSEQUENT TREATMENT CYCLES
     Route: 042
  4. MARGETUXIMAB [Suspect]
     Active Substance: MARGETUXIMAB
     Indication: Breast cancer metastatic
     Dosage: OVER AT LEAST 120 MINUTES
     Route: 042
  5. VINORELBINE [Suspect]
     Active Substance: VINORELBINE TARTRATE
     Indication: Breast cancer metastatic
     Dosage: ON DAYS 1 AND 8 OF EACH TREATMENT CYCLE AT 25-30 MG/M2
     Route: 042
  6. GEMCITABINE [Suspect]
     Active Substance: GEMCITABINE
     Indication: Breast cancer metastatic
     Dosage: ON DAYS 1 AND 8 OF EACH TREATMENT CYCLE
     Route: 042
  7. ERIBULIN [Suspect]
     Active Substance: ERIBULIN
     Indication: Breast cancer metastatic
     Route: 065

REACTIONS (25)
  - Aspartate aminotransferase increased [Unknown]
  - Urinary tract infection [Unknown]
  - Fatigue [Unknown]
  - Hypokalaemia [Unknown]
  - Gamma-glutamyltransferase increased [Unknown]
  - Anaemia [Unknown]
  - White blood cell count decreased [Unknown]
  - Neutrophil count decreased [Unknown]
  - Neutropenia [Unknown]
  - Platelet count decreased [Unknown]
  - Lymphocyte count decreased [Unknown]
  - Febrile neutropenia [Unknown]
  - Alanine aminotransferase increased [Unknown]
  - Nausea [Unknown]
  - Hyperglycaemia [Unknown]
  - Hypoalbuminaemia [Unknown]
  - Infusion related reaction [Unknown]
  - Diarrhoea [Unknown]
  - Constipation [Unknown]
  - Vomiting [Unknown]
  - Pyrexia [Unknown]
  - Weight decreased [Unknown]
  - Bone pain [Unknown]
  - Hyponatraemia [Unknown]
  - Rash [Unknown]
